FAERS Safety Report 17431500 (Version 2)
Quarter: 2020Q1

REPORT INFORMATION
  Report Type: Report from Study
  Country: CA (occurrence: CA)
  Receive Date: 20200218
  Receipt Date: 20200327
  Transmission Date: 20200409
  Serious: Yes (Hospitalization)
  Sender: FDA-Public Use
  Company Number: CA-MYLANLABS-2020M1017293

PATIENT
  Sex: Male

DRUGS (9)
  1. CLOZAPINE. [Suspect]
     Active Substance: CLOZAPINE
     Indication: SCHIZOPHRENIA
     Dosage: 150 MILLIGRAM, QHS
     Route: 048
     Dates: start: 20200118, end: 20200205
  2. DIVALPROEX [Concomitant]
     Active Substance: DIVALPROEX SODIUM
     Dosage: UNK
  3. CLONAZEPAM. [Concomitant]
     Active Substance: CLONAZEPAM
     Dosage: UNK
  4. PANTOPRAZOLE [Concomitant]
     Active Substance: PANTOPRAZOLE
     Dosage: UNK
  5. PALIPERIDONE. [Concomitant]
     Active Substance: PALIPERIDONE
     Dosage: UNK
  6. DIMENHYDRINATE. [Concomitant]
     Active Substance: DIMENHYDRINATE
     Dosage: UNK
  7. LORAZEPAM. [Concomitant]
     Active Substance: LORAZEPAM
     Dosage: UNK
  8. LOXAPINE. [Concomitant]
     Active Substance: LOXAPINE
     Dosage: UNK
  9. DIPHENHYDRAMINE. [Concomitant]
     Active Substance: DIPHENHYDRAMINE
     Dosage: UNK

REACTIONS (2)
  - Tachycardia [Not Recovered/Not Resolved]
  - Dehydration [Unknown]
